FAERS Safety Report 19122530 (Version 1)
Quarter: 2021Q2

REPORT INFORMATION
  Report Type: Spontaneous
  Country: CN (occurrence: CN)
  Receive Date: 20210412
  Receipt Date: 20210412
  Transmission Date: 20210717
  Serious: Yes (Other)
  Sender: FDA-Public Use
  Company Number: CN-ASTRAZENECA-2021A273690

PATIENT
  Age: 59 Year
  Sex: Male

DRUGS (7)
  1. GEFITINIB. [Suspect]
     Active Substance: GEFITINIB
     Indication: LUNG ADENOCARCINOMA
     Route: 048
  2. GEMCITABINE. [Concomitant]
     Active Substance: GEMCITABINE
     Dosage: 1000.0MG/M2 UNKNOWN
     Route: 065
  3. CISPLATIN. [Concomitant]
     Active Substance: CISPLATIN
     Dosage: 75.0MG/M2 UNKNOWN
     Route: 065
  4. OSIMERTINIB. [Suspect]
     Active Substance: OSIMERTINIB
     Indication: LUNG ADENOCARCINOMA
     Route: 048
  5. CARBOPLATIN. [Concomitant]
     Active Substance: CARBOPLATIN
     Dosage: 500.0MG/M2 UNKNOWN
     Route: 065
     Dates: start: 201906, end: 201909
  6. ERLOTINIB [Concomitant]
     Active Substance: ERLOTINIB
     Route: 065
     Dates: start: 201911
  7. PEMETREXED. [Concomitant]
     Active Substance: PEMETREXED
     Dosage: 500.0MG/M2 UNKNOWN
     Route: 065
     Dates: start: 201906, end: 201909

REACTIONS (1)
  - Malignant neoplasm progression [Unknown]
